FAERS Safety Report 5937766-5 (Version None)
Quarter: 2008Q4

REPORT INFORMATION
  Report Type: 
  Country: None (occurrence: None)
  Receive Date: 20081031
  Receipt Date: 20081017
  Transmission Date: 20090506
  Serious: Yes (Death)
  Sender: FDA-Public Use
  Company Number: KR-GENENTECH-270388

PATIENT
  Sex: Male

DRUGS (5)
  1. TRASTUZUMAB [Suspect]
     Indication: GASTRIC CANCER
     Dosage: 8 MG/KG, SINGLE
     Route: 042
     Dates: start: 20080813
  2. TRASTUZUMAB [Suspect]
     Dosage: 6 MG/KG, Q3W
     Route: 042
  3. CAPECITABINE [Suspect]
     Indication: GASTRIC CANCER
     Dosage: 2000 MG/M2, Q3W
     Route: 048
     Dates: start: 20080813
  4. CISPLATIN [Suspect]
     Indication: GASTRIC CANCER
     Dosage: 80 MG/M2, Q3W
     Route: 042
     Dates: start: 20080813
  5. ATACAND HCT [Concomitant]
     Indication: DRUG USE FOR UNKNOWN INDICATION
     Dosage: UNK
     Dates: start: 20080921, end: 20081002

REACTIONS (1)
  - DEATH [None]
